FAERS Safety Report 25131261 (Version 1)
Quarter: 2025Q1

REPORT INFORMATION
  Report Type: Spontaneous
  Country: US (occurrence: US)
  Receive Date: 20250327
  Receipt Date: 20250327
  Transmission Date: 20250409
  Serious: Yes (Life-Threatening, Disabling)
  Sender: ROCHE
  Company Number: US-ROCHE-10000242450

PATIENT
  Age: 62 Year
  Sex: Male

DRUGS (1)
  1. TNKASE [Suspect]
     Active Substance: TENECTEPLASE
     Indication: Ischaemic stroke
     Route: 065

REACTIONS (2)
  - Haemorrhage intracranial [Unknown]
  - Off label use [Unknown]
